FAERS Safety Report 11800280 (Version 1)
Quarter: 2015Q4

REPORT INFORMATION
  Report Type: Spontaneous
  Country: KR (occurrence: KR)
  Receive Date: 20151203
  Receipt Date: 20151203
  Transmission Date: 20160305
  Serious: Yes (Hospitalization)
  Sender: FDA-Public Use
  Company Number: KR-AMGEN-KORCT2015128040

PATIENT
  Age: 62 Year
  Sex: Female
  Weight: 74 kg

DRUGS (20)
  1. CYCLOPHOSPHAMIDE. [Concomitant]
     Active Substance: CYCLOPHOSPHAMIDE
     Dosage: 830 MG, UNK
     Route: 042
     Dates: start: 20150822, end: 20150822
  2. CYCLOPHOSPHAMIDE. [Concomitant]
     Active Substance: CYCLOPHOSPHAMIDE
     Dosage: 830 MG, UNK
     Route: 042
     Dates: start: 20151114, end: 20151114
  3. DOCETAXEL. [Concomitant]
     Active Substance: DOCETAXEL
     Dosage: 124 MG, UNK
     Route: 042
     Dates: start: 20150912, end: 20150912
  4. DOXORUBICIN [Concomitant]
     Active Substance: DOXORUBICIN
     Dosage: 82 MG, UNK
     Route: 042
     Dates: start: 20150912, end: 20150912
  5. DOXORUBICIN [Concomitant]
     Active Substance: DOXORUBICIN
     Dosage: 82 MG, UNK
     Route: 042
     Dates: start: 20151114, end: 20151114
  6. CYCLOPHOSPHAMIDE. [Concomitant]
     Active Substance: CYCLOPHOSPHAMIDE
     Dosage: 830 MG, UNK
     Route: 042
     Dates: start: 20151003, end: 20151003
  7. G-LASTA [Suspect]
     Active Substance: PEGFILGRASTIM
     Dosage: 6 MG, 1X/3WEEKS
     Route: 058
     Dates: start: 20151025
  8. CYCLOPHOSPHAMIDE. [Concomitant]
     Active Substance: CYCLOPHOSPHAMIDE
     Dosage: 830 MG, UNK
     Route: 042
     Dates: start: 20150912, end: 20150912
  9. G-LASTA [Suspect]
     Active Substance: PEGFILGRASTIM
     Dosage: 6 MG, 1X/3WEEKS
     Route: 058
     Dates: start: 20151115
  10. DOXORUBICIN [Concomitant]
     Active Substance: DOXORUBICIN
     Dosage: 82 MG, UNK
     Route: 042
     Dates: start: 20151003, end: 20151003
  11. G-LASTA [Suspect]
     Active Substance: PEGFILGRASTIM
     Dosage: 6 MG, 1X/3WEEKS
     Route: 058
     Dates: start: 20150913
  12. DOCETAXEL. [Concomitant]
     Active Substance: DOCETAXEL
     Dosage: 124 MG, UNK
     Route: 042
     Dates: start: 20151024, end: 20151024
  13. DOCETAXEL. [Concomitant]
     Active Substance: DOCETAXEL
     Dosage: 124 MG, UNK
     Route: 042
     Dates: start: 20151114, end: 20151114
  14. DOXORUBICIN [Concomitant]
     Active Substance: DOXORUBICIN
     Dosage: 82 MG, UNK
     Route: 042
     Dates: start: 20150822, end: 20150822
  15. DOXORUBICIN [Concomitant]
     Active Substance: DOXORUBICIN
     Dosage: 82 MG, UNK
     Route: 042
     Dates: start: 20151024, end: 20151024
  16. CYCLOPHOSPHAMIDE. [Concomitant]
     Active Substance: CYCLOPHOSPHAMIDE
     Dosage: 830 MG, UNK
     Route: 042
     Dates: start: 20151024, end: 20151024
  17. G-LASTA [Suspect]
     Active Substance: PEGFILGRASTIM
     Dosage: 6 MG, 1X/3WEEKS
     Route: 058
     Dates: start: 20151004
  18. DOCETAXEL. [Concomitant]
     Active Substance: DOCETAXEL
     Dosage: 124 MG, UNK
     Route: 042
     Dates: start: 20150822, end: 20150822
  19. G-LASTA [Suspect]
     Active Substance: PEGFILGRASTIM
     Indication: FEBRILE NEUTROPENIA
     Dosage: 6 MG, 1X/3WEEKS
     Route: 058
     Dates: start: 20150823
  20. DOCETAXEL. [Concomitant]
     Active Substance: DOCETAXEL
     Dosage: 124 MG, UNK
     Route: 042
     Dates: start: 20151003, end: 20151003

REACTIONS (1)
  - Neutropenia [Recovered/Resolved]

NARRATIVE: CASE EVENT DATE: 20151120
